FAERS Safety Report 25709998 (Version 1)
Quarter: 2025Q3

REPORT INFORMATION
  Report Type: Spontaneous
  Country: EU (occurrence: EU)
  Receive Date: 20250821
  Receipt Date: 20250821
  Transmission Date: 20251020
  Serious: Yes (Other)
  Sender: TEVA
  Company Number: EU-TEVA-VS-3363329

PATIENT
  Age: 83 Year
  Sex: Female

DRUGS (1)
  1. AMOXICILLIN [Suspect]
     Active Substance: AMOXICILLIN
     Indication: Product used for unknown indication
     Route: 065

REACTIONS (5)
  - Haematoma [Unknown]
  - Eye infection [Unknown]
  - Proctitis [Unknown]
  - Bladder neck obstruction [Unknown]
  - Drug hypersensitivity [Unknown]
